FAERS Safety Report 6020573-5 (Version None)
Quarter: 2008Q4

REPORT INFORMATION
  Report Type: 
  Country: None (occurrence: None)
  Receive Date: 20081227
  Receipt Date: 20081217
  Transmission Date: 20090506
  Serious: No
  Sender: FDA-Public Use
  Company Number: JP-JNJFOC-20081203737

PATIENT
  Age: 84 Year
  Sex: Female

DRUGS (4)
  1. FENTANYL [Suspect]
     Route: 062
  2. FENTANYL [Suspect]
     Route: 062
  3. FENTANYL [Suspect]
     Indication: DRUG USE FOR UNKNOWN INDICATION
     Route: 062
  4. MORPHINE SULFATE HYDRATE [Suspect]
     Indication: DRUG USE FOR UNKNOWN INDICATION
     Route: 065

REACTIONS (5)
  - DISCOMFORT [None]
  - FEELING ABNORMAL [None]
  - HYPERHIDROSIS [None]
  - IRRITABILITY [None]
  - WRONG TECHNIQUE IN DRUG USAGE PROCESS [None]
